FAERS Safety Report 12465333 (Version 5)
Quarter: 2018Q2

REPORT INFORMATION
  Report Type: Report from Study
  Country: JP (occurrence: JP)
  Receive Date: 20160614
  Receipt Date: 20180618
  Transmission Date: 20180711
  Serious: Yes (Hospitalization, Other)
  Sender: FDA-Public Use
  Company Number: JP-BRISTOL-MYERS SQUIBB COMPANY-BMS-2015-086787

PATIENT
  Age: 74 Year
  Sex: Female
  Weight: 43.5 kg

DRUGS (1)
  1. IPILIMUMAB [Suspect]
     Active Substance: IPILIMUMAB
     Indication: MALIGNANT MELANOMA STAGE IV
     Dosage: 3 MG/KG, QD
     Route: 041
     Dates: start: 20151002, end: 20151204

REACTIONS (6)
  - Hypophysitis [Recovering/Resolving]
  - Pituitary enlargement [Recovering/Resolving]
  - Blood sodium decreased [Unknown]
  - Adrenal insufficiency [Recovering/Resolving]
  - Headache [Recovering/Resolving]
  - Hypothyroidism [Recovered/Resolved]

NARRATIVE: CASE EVENT DATE: 20151203
